FAERS Safety Report 22669474 (Version 3)
Quarter: 2024Q1

REPORT INFORMATION
  Report Type: Report from Study
  Country: US (occurrence: US)
  Receive Date: 20230704
  Receipt Date: 20240227
  Transmission Date: 20240410
  Serious: Yes (Hospitalization, Other)
  Sender: FDA-Public Use
  Company Number: US-UCBSA-2022000032

PATIENT
  Age: 72 Year
  Sex: Female
  Weight: 53.5 kg

DRUGS (1)
  1. LACOSAMIDE [Suspect]
     Active Substance: LACOSAMIDE
     Indication: Seizure
     Dosage: 150MG 2 TABLETS BID
     Route: 048

REACTIONS (6)
  - Seizure [Recovered/Resolved]
  - Dementia [Not Recovered/Not Resolved]
  - Rib fracture [Recovered/Resolved]
  - Hip fracture [Recovered/Resolved]
  - Fall [Not Recovered/Not Resolved]
  - Therapy interrupted [Unknown]

NARRATIVE: CASE EVENT DATE: 20211229
